FAERS Safety Report 23239299 (Version 2)
Quarter: 2023Q4

REPORT INFORMATION
  Report Type: Spontaneous
  Country: PT (occurrence: PT)
  Receive Date: 20231129
  Receipt Date: 20231207
  Transmission Date: 20240109
  Serious: Yes (Life-Threatening, Hospitalization, Other)
  Sender: FDA-Public Use
  Company Number: PT-EMA-DD-20230628-7180171-110144

PATIENT
  Age: 49 Year
  Sex: Male

DRUGS (8)
  1. FENTANYL [Interacting]
     Active Substance: FENTANYL\FENTANYL CITRATE
     Indication: Spinal fusion surgery
     Dosage: UNK
     Route: 042
  2. FENTANYL [Interacting]
     Active Substance: FENTANYL\FENTANYL CITRATE
     Indication: Anaesthesia
     Dosage: UNK
     Route: 065
  3. METHYLPHENIDATE HYDROCHLORIDE [Interacting]
     Active Substance: METHYLPHENIDATE HYDROCHLORIDE
     Indication: Depression
     Dosage: UNK
     Route: 065
  4. METHYLPHENIDATE HYDROCHLORIDE [Interacting]
     Active Substance: METHYLPHENIDATE HYDROCHLORIDE
     Indication: Attention deficit hyperactivity disorder
  5. ONDANSETRON [Interacting]
     Active Substance: ONDANSETRON
     Indication: General anaesthesia
     Dosage: UNK
     Route: 065
  6. TRAZODONE [Interacting]
     Active Substance: TRAZODONE HYDROCHLORIDE
     Indication: Attention deficit hyperactivity disorder
     Dosage: UNK
     Route: 065
  7. TRAZODONE [Interacting]
     Active Substance: TRAZODONE HYDROCHLORIDE
     Indication: Spinal fusion surgery
     Dosage: UNK
     Route: 065
  8. TRAZODONE [Interacting]
     Active Substance: TRAZODONE HYDROCHLORIDE
     Indication: Depression

REACTIONS (10)
  - Agitation [Recovered/Resolved]
  - Unresponsive to stimuli [Recovered/Resolved]
  - Binocular eye movement disorder [Recovered/Resolved]
  - Akathisia [Recovered/Resolved]
  - Serotonin syndrome [Recovered/Resolved]
  - Hyperkinesia [Recovered/Resolved]
  - Mental status changes [Recovered/Resolved]
  - Hypertension [Recovered/Resolved]
  - Tachycardia [Recovered/Resolved]
  - Hyperthermia [Recovered/Resolved]
